FAERS Safety Report 8615918-3 (Version None)
Quarter: 2012Q3

REPORT INFORMATION
  Report Type: 
  Country: None (occurrence: None)
  Receive Date: 20120823
  Receipt Date: 20120816
  Transmission Date: 20120928
  Serious: Yes (Death, Hospitalization)
  Sender: FDA-Public Use
  Company Number: US-GLAXOSMITHKLINE-A0989413A

PATIENT
  Age: 53 Year
  Sex: Female

DRUGS (1)
  1. FLOLAN [Suspect]
     Indication: PRODUCT USED FOR UNKNOWN INDICATION
     Dosage: 18NGKM CONTINUOUS
     Route: 042
     Dates: start: 20120723, end: 20120810

REACTIONS (8)
  - MULTI-ORGAN FAILURE [None]
  - HYPOTENSION [None]
  - MYOCARDIAL INFARCTION [None]
  - TACHYCARDIA [None]
  - VOMITING [None]
  - ENDOTRACHEAL INTUBATION [None]
  - NAUSEA [None]
  - DEATH [None]
